FAERS Safety Report 4696871-4 (Version None)
Quarter: 2005Q2

REPORT INFORMATION
  Report Type: 
  Country: None (occurrence: None)
  Receive Date: 20050622
  Receipt Date: 20050525
  Transmission Date: 20051028
  Serious: Yes (Disabling)
  Sender: FDA-Public Use
  Company Number: PHEH2005US06014

PATIENT
  Age: 31 Year
  Sex: Female
  Weight: 77 kg

DRUGS (7)
  1. VIVELLE [Suspect]
     Indication: HYSTERECTOMY
     Dosage: 0.1MG, TWICE WEEKLY
     Dates: start: 20031124
  2. PAXIL [Concomitant]
     Indication: DEPRESSION
  3. NEURONTIN [Concomitant]
     Indication: PAIN
  4. FLONASE [Concomitant]
     Indication: HYPERSENSITIVITY
  5. URIMAR-T [Concomitant]
     Indication: MICTURITION URGENCY
     Dosage: UNK, QID
     Dates: start: 20050228
  6. DURAGESIC-100 [Concomitant]
  7. EFFEXOR [Concomitant]

REACTIONS (3)
  - CYSTITIS INTERSTITIAL [None]
  - NERVE INJURY [None]
  - PELVIC PAIN [None]
